FAERS Safety Report 6651129-9 (Version None)
Quarter: 2010Q1

REPORT INFORMATION
  Report Type: 
  Country: None (occurrence: None)
  Receive Date: 20100323
  Receipt Date: 20100316
  Transmission Date: 20100710
  Serious: Yes (Life-Threatening, Hospitalization)
  Sender: FDA-Public Use
  Company Number: WAES 1003USA00831

PATIENT
  Age: 48 Year
  Sex: Male
  Weight: 90.7194 kg

DRUGS (3)
  1. DECADRON [Suspect]
     Dosage: PO
     Route: 048
  2. CAP VORINOSTAT UNK [Suspect]
     Indication: GLIOBLASTOMA MULTIFORME
     Dosage: 400 MG/DAILY/PO
     Route: 048
     Dates: start: 20100219, end: 20100304
  3. VELCADE [Suspect]
     Indication: GLIOBLASTOMA MULTIFORME
     Dosage: 1.3 MG/M[2] IV
     Route: 042
     Dates: start: 20100219, end: 20100301

REACTIONS (7)
  - ABNORMAL BEHAVIOUR [None]
  - AGITATION [None]
  - DELUSION [None]
  - HAEMOGLOBIN DECREASED [None]
  - NUCLEAR MAGNETIC RESONANCE IMAGING BRAIN ABNORMAL [None]
  - PERSONALITY CHANGE [None]
  - THROMBOCYTOPENIA [None]
